FAERS Safety Report 10402098 (Version 3)
Quarter: 2014Q4

REPORT INFORMATION
  Report Type: Report from Study
  Country: US (occurrence: US)
  Receive Date: 20140822
  Receipt Date: 20141113
  Transmission Date: 20150528
  Serious: Yes (Hospitalization, Other)
  Sender: FDA-Public Use
  Company Number: US-ABBVIE-14P-163-1273153-00

PATIENT
  Age: 58 Year
  Sex: Male
  Weight: 77.18 kg

DRUGS (4)
  1. HUMIRA [Suspect]
     Active Substance: ADALIMUMAB
     Indication: CROHN^S DISEASE
     Route: 065
     Dates: start: 20140617
  2. XARELTO [Suspect]
     Active Substance: RIVAROXABAN
     Dosage: DOSE INCREASING
     Route: 065
  3. HUMIRA [Suspect]
     Active Substance: ADALIMUMAB
     Route: 065
     Dates: start: 20140816
  4. XARELTO [Suspect]
     Active Substance: RIVAROXABAN
     Indication: PULMONARY EMBOLISM
     Dosage: ONE TAB IN AM AND ONE TAB IN PM
     Route: 065
     Dates: start: 201408

REACTIONS (9)
  - Pleurisy [Recovered/Resolved]
  - Chest pain [Recovered/Resolved]
  - Throat tightness [Unknown]
  - Pulmonary embolism [Recovered/Resolved]
  - Hypercoagulation [Unknown]
  - Arthropod sting [Unknown]
  - Peripheral swelling [Recovering/Resolving]
  - Pneumonia [Recovered/Resolved]
  - Pruritus [Unknown]

NARRATIVE: CASE EVENT DATE: 2014
